FAERS Safety Report 4647074-0 (Version None)
Quarter: 2005Q2

REPORT INFORMATION
  Report Type: 
  Country: None (occurrence: None)
  Receive Date: 20050331
  Receipt Date: 20050131
  Transmission Date: 20051028
  Serious: No
  Sender: FDA-Public Use
  Company Number: 05P-163-0288872-00

PATIENT
  Age: 56 Year
  Sex: Female
  Weight: 65.7716 kg

DRUGS (6)
  1. HUMIRA [Suspect]
     Indication: RHEUMATOID ARTHRITIS
     Dosage: 40 MG, 1 IN 2 WK, SUBCUTANEOUS
     Route: 058
     Dates: start: 20050113, end: 20050118
  2. PREDNISONE [Concomitant]
  3. HYDROCODONE BITARTRATE [Concomitant]
  4. FULINDAC [Concomitant]
  5. HYDROXYCHLOROQUINE SULFATE [Concomitant]
  6. CALCIUM CITRATE [Concomitant]

REACTIONS (7)
  - DEPRESSION [None]
  - FATIGUE [None]
  - HEADACHE [None]
  - INSOMNIA [None]
  - PRURITUS [None]
  - SYNCOPE [None]
  - TREMOR [None]
